FAERS Safety Report 10398006 (Version 2)
Quarter: 2014Q3

REPORT INFORMATION
  Report Type: Report from Study
  Country: CA (occurrence: CA)
  Receive Date: 20140821
  Receipt Date: 20140821
  Transmission Date: 20150326
  Serious: Yes (Hospitalization, Other)
  Sender: FDA-Public Use
  Company Number: CA-BRISTOL-MYERS SQUIBB COMPANY-15687668

PATIENT
  Age: 43 Year
  Sex: Female

DRUGS (5)
  1. METHOTREXATE [Concomitant]
     Active Substance: METHOTREXATE
  2. PREDNISONE. [Concomitant]
     Active Substance: PREDNISONE
  3. ORENCIA [Suspect]
     Active Substance: ABATACEPT
     Indication: RHEUMATOID ARTHRITIS
     Dosage: LAST DOSE:24MAR11,1NOV11,27DEC11,18JUL12.INF:57EXP 1C71233:OCT13. 1G64569 MA2014 3J75954,JUL2016.
     Route: 042
     Dates: start: 20071219
  4. NOVO-ATENOL [Concomitant]
  5. FOLIC ACID. [Concomitant]
     Active Substance: FOLIC ACID
     Dosage: APO-FOLIC

REACTIONS (10)
  - Kidney infection [Unknown]
  - Oropharyngeal pain [Unknown]
  - Sinusitis [Unknown]
  - Cough [Unknown]
  - Pyrexia [Unknown]
  - Nasopharyngitis [Unknown]
  - Headache [Unknown]
  - Sleep apnoea syndrome [Unknown]
  - Rhinorrhoea [Unknown]
  - Oropharyngeal pain [Unknown]

NARRATIVE: CASE EVENT DATE: 2011
